FAERS Safety Report 25659408 (Version 2)
Quarter: 2025Q3

REPORT INFORMATION
  Report Type: Spontaneous
  Country: JP (occurrence: JP)
  Receive Date: 20250808
  Receipt Date: 20250815
  Transmission Date: 20251021
  Serious: Yes (Hospitalization, Other)
  Sender: CSL BEHRING
  Company Number: JP-BEH-2025210466

PATIENT
  Age: 79 Year
  Sex: Female
  Weight: 54.2 kg

DRUGS (17)
  1. KORSUVA [Suspect]
     Active Substance: DIFELIKEFALIN ACETATE
     Indication: Pruritus
     Route: 042
     Dates: start: 20250414, end: 20250422
  2. NALFURAFINE HYDROCHLORIDE [Suspect]
     Active Substance: NALFURAFINE HYDROCHLORIDE
     Indication: Pruritus
     Dosage: 2.5 ?G, QD
     Route: 065
     Dates: start: 20250324, end: 20250404
  3. NALFURAFINE HYDROCHLORIDE [Suspect]
     Active Substance: NALFURAFINE HYDROCHLORIDE
     Dosage: 5 UNK
     Route: 065
     Dates: start: 20250404, end: 20250414
  4. NALFURAFINE HYDROCHLORIDE [Suspect]
     Active Substance: NALFURAFINE HYDROCHLORIDE
     Dosage: 5 UNK
     Route: 065
     Dates: start: 20250424, end: 20250508
  5. VONOPRAZAN FUMARATE [Suspect]
     Active Substance: VONOPRAZAN FUMARATE
     Indication: Gastrooesophageal reflux disease
     Dosage: 75 MG, QD
     Route: 048
     Dates: end: 20250509
  6. EVOCALCET [Concomitant]
     Active Substance: EVOCALCET
     Indication: Hyperparathyroidism secondary
     Dosage: 1 MG, QD
     Route: 048
  7. ATORVASTATIN CALCIUM [Concomitant]
     Active Substance: ATORVASTATIN CALCIUM
     Indication: Dyslipidaemia
     Dosage: 20 MG, QD
     Route: 048
  8. AZOSEMIDE [Concomitant]
     Active Substance: AZOSEMIDE
     Indication: End stage renal disease
     Dosage: 60 MG, QD
     Route: 048
  9. CLOPIDOGREL BISULFATE [Concomitant]
     Active Substance: CLOPIDOGREL BISULFATE
     Indication: Cerebral infarction
     Dosage: 75 MG, QD
     Route: 048
     Dates: start: 20250124
  10. ALFACALCIDOL [Concomitant]
     Active Substance: ALFACALCIDOL
     Indication: Hyperparathyroidism secondary
     Dosage: 0.25 ?G, QD
     Route: 048
  11. MIYA-BM [Concomitant]
     Active Substance: CLOSTRIDIUM BUTYRICUM SPORES STRAIN M-55
     Indication: Colitis ischaemic
     Dosage: 3 DF, TID
     Route: 048
     Dates: start: 20250130
  12. POTASSIUM GLUCONATE [Concomitant]
     Active Substance: POTASSIUM GLUCONATE
     Indication: Hypokalaemia
     Dosage: 5 MEQ, QD
     Route: 048
  13. DARBEPOETIN ALFA [Concomitant]
     Active Substance: DARBEPOETIN ALFA
     Indication: Nephrogenic anaemia
     Dosage: 30 ?G, QD, DIALYSIS DAY
     Route: 042
  14. ENTRESTO [Concomitant]
     Active Substance: SACUBITRIL\VALSARTAN
     Indication: Hypertension
     Dosage: 400 MG, TID
     Route: 048
     Dates: start: 20250422
  15. CARVEDILOL [Concomitant]
     Active Substance: CARVEDILOL
     Indication: Hypertension
     Dosage: 10 MG, QD
     Route: 048
     Dates: start: 20250422
  16. POLARAMINE [Concomitant]
     Active Substance: DEXCHLORPHENIRAMINE MALEATE
     Indication: Pruritus
     Dates: start: 20250429
  17. GLYCYRRHIZIN [Concomitant]
     Active Substance: GLYCYRRHIZIN
     Indication: Pruritus
     Dates: start: 20250429

REACTIONS (4)
  - Eosinophilia [Recovering/Resolving]
  - Gleich^s syndrome [Unknown]
  - Hypotension [Recovering/Resolving]
  - Face oedema [Recovering/Resolving]

NARRATIVE: CASE EVENT DATE: 20250418
